FAERS Safety Report 13657409 (Version 1)
Quarter: 2017Q2

REPORT INFORMATION
  Report Type: Spontaneous
  Country: US (occurrence: US)
  Receive Date: 20170615
  Receipt Date: 20170615
  Transmission Date: 20170830
  Serious: No
  Sender: FDA-Public Use
  Company Number: US-ASTRAZENECA-2017SE57133

PATIENT
  Age: 17076 Day
  Sex: Male
  Weight: 74.4 kg

DRUGS (3)
  1. PREDNISONE. [Suspect]
     Active Substance: PREDNISONE
     Route: 065
  2. NEXIUM [Suspect]
     Active Substance: ESOMEPRAZOLE MAGNESIUM
     Indication: GASTROOESOPHAGEAL REFLUX DISEASE
     Route: 048
  3. PRILOSEC [Suspect]
     Active Substance: OMEPRAZOLE MAGNESIUM
     Indication: GASTROOESOPHAGEAL REFLUX DISEASE
     Dosage: GENERIC
     Route: 048
     Dates: start: 2002

REACTIONS (5)
  - Gastrooesophageal reflux disease [Unknown]
  - Drug effect delayed [Unknown]
  - Drug ineffective [Unknown]
  - Epigastric discomfort [Unknown]
  - Back injury [Unknown]

NARRATIVE: CASE EVENT DATE: 201705
